FAERS Safety Report 9397065 (Version 1)
Quarter: 2013Q3

REPORT INFORMATION
  Report Type: Spontaneous
  Country: US (occurrence: US)
  Receive Date: 20130712
  Receipt Date: 20130712
  Transmission Date: 20140515
  Serious: No
  Sender: FDA-Public Use
  Company Number: US-PFIZER INC-2013202886

PATIENT
  Age: 58 Year
  Sex: Female

DRUGS (3)
  1. NEURONTIN [Suspect]
     Indication: LIMB DISCOMFORT
     Dosage: UNK
  2. ASA [Concomitant]
     Dosage: UNK
  3. FISH OIL [Concomitant]
     Dosage: UNK

REACTIONS (2)
  - Therapeutic response unexpected [Unknown]
  - Off label use [Unknown]
